FAERS Safety Report 23361483 (Version 8)
Quarter: 2025Q3

REPORT INFORMATION
  Report Type: Report from Study
  Country: US (occurrence: US)
  Receive Date: 20240103
  Receipt Date: 20250829
  Transmission Date: 20251020
  Serious: No
  Sender: TAKEDA
  Company Number: US-TAKEDA-2024TUS000374

PATIENT
  Sex: Female

DRUGS (12)
  1. VEDOLIZUMAB [Suspect]
     Active Substance: VEDOLIZUMAB
     Indication: Crohn^s disease
  2. VEDOLIZUMAB [Suspect]
     Active Substance: VEDOLIZUMAB
  3. VEDOLIZUMAB [Suspect]
     Active Substance: VEDOLIZUMAB
  4. VEDOLIZUMAB [Suspect]
     Active Substance: VEDOLIZUMAB
     Dosage: 300 MILLIGRAM, Q6WEEKS
  5. VEDOLIZUMAB [Suspect]
     Active Substance: VEDOLIZUMAB
     Dosage: 300 MILLIGRAM, Q6WEEKS
  6. BUDESONIDE [Concomitant]
     Active Substance: BUDESONIDE
  7. DICYCLOMINE HYDROCHLORIDE [Concomitant]
     Active Substance: DICYCLOMINE HYDROCHLORIDE
  8. IMODIUM A-D [Concomitant]
     Active Substance: LOPERAMIDE HYDROCHLORIDE
  9. MECLIZINE HYDROCHLORIDE [Concomitant]
     Active Substance: MECLIZINE HYDROCHLORIDE
  10. PROCTOZONE HC [Concomitant]
     Active Substance: HYDROCORTISONE
  11. SERTRALINE HYDROCHLORIDE [Concomitant]
     Active Substance: SERTRALINE HYDROCHLORIDE
  12. AMBIEN [Concomitant]
     Active Substance: ZOLPIDEM TARTRATE

REACTIONS (18)
  - Abdominal pain upper [Unknown]
  - Diarrhoea [Unknown]
  - COVID-19 [Unknown]
  - Anxiety [Unknown]
  - Drug effect less than expected [Unknown]
  - Fall [Unknown]
  - Hypokinesia [Unknown]
  - Depression [Unknown]
  - Hypoaesthesia [Unknown]
  - Hand fracture [Unknown]
  - Anaemia [Unknown]
  - Off label use [Unknown]
  - Abdominal pain [Unknown]
  - Decreased appetite [Unknown]
  - Dizziness [Unknown]
  - Flatulence [Unknown]
  - Fatigue [Unknown]
  - Nausea [Unknown]
